FAERS Safety Report 8789094 (Version 2)
Quarter: 2013Q4

REPORT INFORMATION
  Report Type: Spontaneous
  Country: US (occurrence: US)
  Receive Date: 20120917
  Receipt Date: 20131101
  Transmission Date: 20140711
  Serious: No
  Sender: FDA-Public Use
  Company Number: US-009507513-1209USA000191

PATIENT
  Age: 57 Year
  Sex: Male
  Weight: 70.3 kg

DRUGS (4)
  1. VICTRELIS [Suspect]
     Dosage: 800 MG, TID
     Route: 048
  2. PEGASYS [Concomitant]
  3. RIBAPAK [Concomitant]
     Dosage: 1000 UNK, QD
  4. LISINOPRIL [Concomitant]
     Dosage: 20 MG, UNK

REACTIONS (1)
  - Dry skin [Unknown]
